FAERS Safety Report 8555222-5 (Version None)
Quarter: 2012Q3

REPORT INFORMATION
  Report Type: 
  Country: None (occurrence: None)
  Receive Date: 20120731
  Receipt Date: 20120724
  Transmission Date: 20120928
  Serious: Yes (Other)
  Sender: FDA-Public Use
  Company Number: BR-ABBOTT-12P-020-0948440-00

PATIENT
  Age: 3 Year
  Sex: Male

DRUGS (1)
  1. DEPAKOTE [Suspect]
     Indication: AGGRESSION

REACTIONS (1)
  - BONE MARROW FAILURE [None]
